FAERS Safety Report 21181816 (Version 1)
Quarter: 2022Q3

REPORT INFORMATION
  Report Type: Report from Study
  Country: US (occurrence: US)
  Receive Date: 20220806
  Receipt Date: 20220806
  Transmission Date: 20221026
  Serious: Yes (Hospitalization)
  Sender: FDA-Public Use
  Company Number: US-Accord-272444

PATIENT
  Sex: Male

DRUGS (8)
  1. CLOZAPINE [Suspect]
     Active Substance: CLOZAPINE
     Indication: Schizoaffective disorder
     Dosage: 50 MG EACH MORNING, 125 MG AT BEDTIME BY MOUTH
  2. BENZTROPINE [Concomitant]
     Active Substance: BENZTROPINE
     Dosage: 0.5 MG TWICE DAILY
  3. CYMBALTA [Concomitant]
     Active Substance: DULOXETINE HYDROCHLORIDE
     Dosage: 30 MG AND 60 MG EACH MORNING
  4. DEPAKOTE [Concomitant]
     Active Substance: DIVALPROEX SODIUM
     Dosage: 500 MG 2 TABLETS TWICE?DAILY
  5. GLYCOPYRROLATE [Concomitant]
     Active Substance: GLYCOPYRROLATE
     Dosage: 2 MG THREE TIMES DAILY
  6. PALIPERIDONE [Concomitant]
     Active Substance: PALIPERIDONE
     Dosage: 234 MG EVERY 4 WEEKS
     Route: 030
  7. LITHIUM [Concomitant]
     Active Substance: LITHIUM
     Dosage: 300 MG 2 TABS AT BEDTIME
  8. TRAZODONE [Concomitant]
     Active Substance: TRAZODONE HYDROCHLORIDE
     Dosage: 50 MG AT BEDTIME

REACTIONS (2)
  - Suicidal ideation [Unknown]
  - Product dose omission issue [Unknown]
